FAERS Safety Report 13720428 (Version 1)
Quarter: 2017Q3

REPORT INFORMATION
  Report Type: Spontaneous
  Country: US (occurrence: US)
  Receive Date: 20170705
  Receipt Date: 20170705
  Transmission Date: 20171127
  Serious: Yes (Hospitalization)
  Sender: FDA-Public Use
  Company Number: None

PATIENT
  Age: 69 Year
  Sex: Male
  Weight: 113.95 kg

DRUGS (1)
  1. ROCURONIUM [Suspect]
     Active Substance: ROCURONIUM BROMIDE
     Indication: ENDOCRINE OPHTHALMOPATHY
     Dates: start: 20170418

REACTIONS (2)
  - Muscle twitching [None]
  - Drug effect decreased [None]

NARRATIVE: CASE EVENT DATE: 20170418
